FAERS Safety Report 5934687-9 (Version None)
Quarter: 2008Q4

REPORT INFORMATION
  Report Type: 
  Country: None (occurrence: None)
  Receive Date: 20081029
  Receipt Date: 20081027
  Transmission Date: 20090506
  Serious: Yes (Other)
  Sender: FDA-Public Use
  Company Number: US-RB-005634-08

PATIENT
  Age: 32 Year
  Sex: Female

DRUGS (1)
  1. SUBUTEX [Suspect]
     Dosage: DOSING INFORMATION UNKNOWN
     Route: 060

REACTIONS (2)
  - ABORTION INDUCED [None]
  - DRUG EXPOSURE DURING PREGNANCY [None]
